FAERS Safety Report 4361673-5 (Version None)
Quarter: 2004Q2

REPORT INFORMATION
  Report Type: 
  Country: None (occurrence: None)
  Receive Date: 20040521
  Receipt Date: 20040421
  Transmission Date: 20050107
  Serious: No
  Sender: FDA-Public Use
  Company Number: US-GLAXOSMITHKLINE-A0507928A

PATIENT
  Sex: Male

DRUGS (1)
  1. WELLBUTRIN [Suspect]
     Indication: DEPRESSION
     Route: 048
     Dates: start: 20040301, end: 20040412

REACTIONS (4)
  - ANGER [None]
  - FEELING ABNORMAL [None]
  - ILL-DEFINED DISORDER [None]
  - SUICIDAL IDEATION [None]
